FAERS Safety Report 8845993 (Version 2)
Quarter: 2012Q4

REPORT INFORMATION
  Report Type: 
  Country: GB (occurrence: GB)
  Receive Date: 20121017
  Receipt Date: 20121030
  Transmission Date: 20130627
  Serious: Yes (Hospitalization, Other)
  Sender: FDA-Public Use
  Company Number: GB-B.I. PHARMACEUTICALS,INC./RIDGEFIELD-2012-UK-01406UK

PATIENT
  Age: 83 Year
  Sex: Female

DRUGS (9)
  1. DABIGATRAN [Suspect]
     Indication: ANTICOAGULANT THERAPY
     Dosage: 220 mg
     Route: 048
     Dates: start: 20120307
  2. ATORVASTATIN [Concomitant]
     Dosage: 20 mg
     Route: 048
  3. FUROSEMIDE [Concomitant]
     Dosage: 80 mg
     Route: 048
  4. ISMN [Concomitant]
     Dosage: 10 mg
     Route: 048
  5. LEVOTHYROXINE [Concomitant]
     Dosage: 125 mcg
     Route: 048
  6. NITRAZEPAM [Concomitant]
     Dosage: 10 mg
     Route: 048
  7. SERTRALINE [Concomitant]
     Dosage: 100 mg
     Route: 048
  8. SPIRONOLACTONE [Concomitant]
     Dosage: 25 mg
     Route: 048
  9. TILDIEM LA [Concomitant]
     Dosage: 200 mg
     Route: 048

REACTIONS (7)
  - Fall [Recovered/Resolved]
  - Memory impairment [Recovered/Resolved]
  - Lower respiratory tract infection [Recovered/Resolved]
  - Contusion [Unknown]
  - Contusion [Unknown]
  - Increased tendency to bruise [Recovered/Resolved]
  - Increased tendency to bruise [Recovered/Resolved]
